FAERS Safety Report 18806842 (Version 3)
Quarter: 2021Q1

REPORT INFORMATION
  Report Type: Report from Study
  Country: JP (occurrence: JP)
  Receive Date: 20210128
  Receipt Date: 20210216
  Transmission Date: 20210419
  Serious: Yes (Hospitalization, Other)
  Sender: FDA-Public Use
  Company Number: JP-BAXTER-2020BAX021779

PATIENT
  Age: 67 Year
  Sex: Female

DRUGS (19)
  1. ENDOXAN 1G [Suspect]
     Active Substance: CYCLOPHOSPHAMIDE
     Indication: TRIPLE NEGATIVE BREAST CANCER
     Dosage: LAST DOSE PRIOR TO AE ONSET, 57.8571 MG?FOR 4 DOSES
     Route: 042
     Dates: start: 20190325, end: 20190325
  2. ENDOXAN 1G [Suspect]
     Active Substance: CYCLOPHOSPHAMIDE
     Dosage: LAST DOSE PRIOR TO SAE ONSET OF FEBRILE NEUTROPENIA AND PLATELET COUNT DECREASED.?43.2 MG
     Route: 042
     Dates: start: 20190506, end: 20190506
  3. DOXIL [Suspect]
     Active Substance: DOXORUBICIN HYDROCHLORIDE
     Indication: PRODUCT USED FOR UNKNOWN INDICATION
     Route: 042
  4. ATEZOLIZUMAB. [Suspect]
     Active Substance: ATEZOLIZUMAB
     Indication: TRIPLE NEGATIVE BREAST CANCER
     Dosage: FOR 10 DOSES?60 MG
     Route: 042
     Dates: start: 20181226
  5. EPIRUBICIN [Suspect]
     Active Substance: EPIRUBICIN
     Indication: TRIPLE NEGATIVE BREAST CANCER
     Dosage: LAST DOSE PRIOR TO AE ONSET.?FOR 4 DOSES, 87.25 MG
     Route: 042
     Dates: start: 20190325, end: 20190325
  6. PEGFILGRASTIM [Suspect]
     Active Substance: PEGFILGRASTIM
     Dosage: INJECTION SOLUTION?CYCLE 4 VISIT 2
     Route: 058
     Dates: start: 20190411, end: 20190411
  7. CIPROFLOXACIN HYDROCHLORIDE. [Concomitant]
     Active Substance: CIPROFLOXACIN HYDROCHLORIDE
     Indication: PRODUCT USED FOR UNKNOWN INDICATION
     Route: 065
     Dates: start: 20190527, end: 20190602
  8. ATEZOLIZUMAB. [Suspect]
     Active Substance: ATEZOLIZUMAB
     Dosage: LAST DOSE PRIOR TO SAE FEBRILE NEUTROPENIA AND PLATELET COUNT DECREASED.?60 MG
     Route: 042
     Dates: start: 20190506, end: 20190506
  9. PEGFILGRASTIM [Suspect]
     Active Substance: PEGFILGRASTIM
     Dosage: INJECTION SOLUTION?CYCLE 5 VISIT 1
     Route: 058
     Dates: start: 20190424, end: 20190424
  10. PACLITAXEL. [Suspect]
     Active Substance: PACLITAXEL
     Indication: TRIPLE NEGATIVE BREAST CANCER
     Dosage: 11.4286 MG/M2
     Route: 042
     Dates: start: 20181226
  11. EPIRUBICIN [Suspect]
     Active Substance: EPIRUBICIN
     Dosage: LAST DOSE PRIOR TO ONSET OF FEBRILE NEUTROPENIA AND PLATELET COUNT DECREASED.?6.48 MG
     Route: 042
     Dates: start: 20190506, end: 20190506
  12. PEGFILGRASTIM [Suspect]
     Active Substance: PEGFILGRASTIM
     Indication: TRIPLE NEGATIVE BREAST CANCER
     Dosage: INJECTION SOLUTION?CYCLE 4 VISIT 1
     Route: 058
     Dates: start: 20190327, end: 20190327
  13. DOXORUBICIN [Suspect]
     Active Substance: DOXORUBICIN
     Indication: PRODUCT USED FOR UNKNOWN INDICATION
     Route: 065
  14. SODIUM FERROUS CITRATE [Concomitant]
     Active Substance: SODIUM FERROUS CITRATE
     Indication: PRODUCT USED FOR UNKNOWN INDICATION
     Dosage: AFTER ONSET OF THE EVENT FEBRILE NEUTROPENIA AND ANEMIA
     Route: 065
     Dates: start: 20190603
  15. PACLITAXEL. [Suspect]
     Active Substance: PACLITAXEL
     Dosage: LAST DOSE PRIOR TO ANEMIA?15.8857 MG/M2
     Route: 042
     Dates: start: 20190325, end: 20190325
  16. SOLDEM 3A [Concomitant]
     Active Substance: CARBOHYDRATES\POTASSIUM CHLORIDE\SODIUM CHLORIDE\SODIUM LACTATE
     Indication: PRODUCT USED FOR UNKNOWN INDICATION
     Dosage: AFTER ONSET OF THE EVENT FEBRILE NEUTROPENIA AND ANEMIA
     Route: 065
  17. PACLITAXEL. [Suspect]
     Active Substance: PACLITAXEL
     Dosage: LAST DOSE PRIOR TO SAE ONSET?11.4286 MG/M2
     Route: 042
     Dates: start: 20190318, end: 20190318
  18. ATEZOLIZUMAB. [Suspect]
     Active Substance: ATEZOLIZUMAB
     Dosage: LAST DOSE PRIOR TO AE?60 MG
     Route: 042
     Dates: start: 20190325, end: 20190325
  19. PEGFILGRASTIM [Suspect]
     Active Substance: PEGFILGRASTIM
     Dosage: INJECTION SOLUTION?CYCLE 5 VISIT 2
     Route: 058
     Dates: start: 20190508, end: 20190508

REACTIONS (3)
  - Anaemia [Recovered/Resolved]
  - Platelet count decreased [Recovered/Resolved]
  - Febrile neutropenia [Recovered/Resolved]

NARRATIVE: CASE EVENT DATE: 20190409
